FAERS Safety Report 7314152-7 (Version None)
Quarter: 2011Q1

REPORT INFORMATION
  Report Type: 
  Country: None (occurrence: None)
  Receive Date: 20110225
  Receipt Date: 20100607
  Transmission Date: 20110831
  Serious: No
  Sender: FDA-Public Use
  Company Number: US-MYLANLABS-2010S1009014

PATIENT
  Age: 18 Year
  Sex: Female
  Weight: 54.43 kg

DRUGS (4)
  1. CLARAVIS [Suspect]
     Indication: ACNE CYSTIC
     Route: 048
  2. SOTRET [Suspect]
     Indication: ACNE CYSTIC
     Route: 048
     Dates: start: 20091109
  3. AMNESTEEM [Suspect]
     Indication: ACNE CYSTIC
     Route: 048
  4. ORAL CONTRACEPTIVE NOS [Concomitant]

REACTIONS (3)
  - AFFECT LABILITY [None]
  - MOOD ALTERED [None]
  - BACK PAIN [None]
